FAERS Safety Report 6639994-2 (Version None)
Quarter: 2010Q1

REPORT INFORMATION
  Report Type: 
  Country: None (occurrence: None)
  Receive Date: 20100302
  Receipt Date: 20091117
  Transmission Date: 20100710
  Serious: No
  Sender: FDA-Public Use
  Company Number: 2009266911

PATIENT
  Age: 73 Year
  Sex: Female
  Weight: 71.2 kg

DRUGS (9)
  1. TOVIAZ [Suspect]
     Indication: HYPERTONIC BLADDER
     Dosage: 4 MG, 1X/DAY, ORAL
     Route: 048
     Dates: start: 20090831
  2. PREDNISONE TAB [Concomitant]
  3. COLCHICINE (COLCHICINE) [Concomitant]
  4. DIGOXIN [Concomitant]
  5. NORVASC [Concomitant]
  6. ZETIA [Concomitant]
  7. ZYRTEC [Concomitant]
  8. ESTRADIOL [Concomitant]
  9. LOVASTATIN [Concomitant]

REACTIONS (2)
  - HEART RATE INCREASED [None]
  - PALPITATIONS [None]
